FAERS Safety Report 14671138 (Version 1)
Quarter: 2018Q1

REPORT INFORMATION
  Report Type: Spontaneous
  Country: US (occurrence: US)
  Receive Date: 20180322
  Receipt Date: 20180322
  Transmission Date: 20180509
  Serious: Yes (Hospitalization)
  Sender: FDA-Public Use
  Company Number: None

PATIENT
  Age: 80 Year
  Sex: Male
  Weight: 77.79 kg

DRUGS (1)
  1. IBRUTINIB [Suspect]
     Active Substance: IBRUTINIB
     Indication: CHRONIC LYMPHOCYTIC LEUKAEMIA
     Route: 048
     Dates: start: 20180111, end: 20180306

REACTIONS (5)
  - Lymphocytosis [None]
  - Chills [None]
  - Sputum abnormal [None]
  - Productive cough [None]
  - Pyrexia [None]

NARRATIVE: CASE EVENT DATE: 20180116
